FAERS Safety Report 16372998 (Version 6)
Quarter: 2021Q4

REPORT INFORMATION
  Report Type: Spontaneous
  Country: US (occurrence: US)
  Receive Date: 20190530
  Receipt Date: 20211007
  Transmission Date: 20220303
  Serious: Yes (Hospitalization, Other)
  Sender: FDA-Public Use
  Company Number: US-INCYTE CORPORATION-2019IN005349

PATIENT

DRUGS (34)
  1. JAKAFI [Suspect]
     Active Substance: RUXOLITINIB
     Indication: Myelofibrosis
     Dosage: UNK
     Route: 048
     Dates: start: 20130303
  2. JAKAFI [Suspect]
     Active Substance: RUXOLITINIB
     Indication: Polycythaemia vera
     Dosage: 20 MILLIGRAM, BID (10 MG, 2 IN 1 D)
     Route: 048
     Dates: start: 20180829, end: 20190327
  3. JAKAFI [Suspect]
     Active Substance: RUXOLITINIB
     Dosage: 20 MILLIGRAM (10 MG, 2 IN 1D)
     Route: 048
     Dates: start: 20180829
  4. JAKAFI [Suspect]
     Active Substance: RUXOLITINIB
     Dosage: UNK
     Route: 065
     Dates: start: 20160726
  5. JAKAFI [Suspect]
     Active Substance: RUXOLITINIB
     Dosage: 20 MILLIGRAM (10 MG, 2 IN 1 D)
     Route: 048
     Dates: start: 20180829, end: 20200322
  6. JAKAFI [Suspect]
     Active Substance: RUXOLITINIB
     Dosage: 10 MILLIGRAM (5 MG, 2 IN 1 D)
     Route: 048
     Dates: start: 20200323, end: 20200920
  7. JAKAFI [Suspect]
     Active Substance: RUXOLITINIB
     Dosage: 10 MILLIGRAM (5 MG, 2 IN 1 D)
     Route: 048
     Dates: start: 20200929
  8. NAVITOCLAX [Suspect]
     Active Substance: NAVITOCLAX
     Indication: Myelofibrosis
     Dosage: 50 MILLIGRAM, QD
     Route: 048
     Dates: start: 20180829, end: 20180904
  9. NAVITOCLAX [Suspect]
     Active Substance: NAVITOCLAX
     Dosage: 100 MILLIGRAM, QD
     Route: 048
     Dates: start: 20180905, end: 20180911
  10. NAVITOCLAX [Suspect]
     Active Substance: NAVITOCLAX
     Dosage: 200 MILLIGRAM, QD
     Route: 048
     Dates: start: 20180912, end: 20180918
  11. NAVITOCLAX [Suspect]
     Active Substance: NAVITOCLAX
     Dosage: 300 MILLIGRAM, QD
     Route: 048
     Dates: start: 20180919, end: 20190503
  12. NAVITOCLAX [Suspect]
     Active Substance: NAVITOCLAX
     Dosage: 300 MILLIGRAM, QD
     Route: 048
     Dates: start: 20190521, end: 20190724
  13. NAVITOCLAX [Suspect]
     Active Substance: NAVITOCLAX
     Dosage: 100 MILLIGRAM, QD
     Route: 048
     Dates: start: 20190522, end: 20190724
  14. NAVITOCLAX [Suspect]
     Active Substance: NAVITOCLAX
     Dosage: 100 MILLIGRAM, QD
     Route: 048
     Dates: start: 20190801, end: 20200222
  15. NAVITOCLAX [Suspect]
     Active Substance: NAVITOCLAX
     Dosage: 50 MILLIGRAM, QD
     Route: 048
     Dates: start: 20200304, end: 20200319
  16. NAVITOCLAX [Suspect]
     Active Substance: NAVITOCLAX
     Dosage: 25 MILLIGRAM, QD
     Route: 048
     Dates: start: 20200323, end: 20200630
  17. NAVITOCLAX [Suspect]
     Active Substance: NAVITOCLAX
     Dosage: 50 MILLIGRAM, QD
     Route: 048
     Dates: start: 20200701, end: 20200920
  18. NAVITOCLAX [Suspect]
     Active Substance: NAVITOCLAX
     Dosage: 50 MILLIGRAM, QD
     Route: 048
     Dates: start: 20200929
  19. ALBUTEROL SULFATE [Concomitant]
     Active Substance: ALBUTEROL SULFATE
     Indication: Sarcoidosis
     Dosage: 2.5 MILLIGRAM, TID
     Dates: start: 20180116
  20. AMLODIPINE BESYLATE [Concomitant]
     Active Substance: AMLODIPINE BESYLATE
     Indication: Hypertensive heart disease
     Dosage: 5 MILLIGRAM, QD
     Route: 048
     Dates: start: 20080211
  21. ASPIRIN [Concomitant]
     Active Substance: ASPIRIN
     Indication: Coagulopathy
     Dosage: 81 MILLIGRAM, QD
     Route: 048
     Dates: start: 20080211
  22. CITALOPRAM [Concomitant]
     Active Substance: CITALOPRAM HYDROBROMIDE
     Indication: Depression
     Dosage: 20 MILLIGRAM, QD
     Route: 048
     Dates: start: 20131022
  23. FLOVENT [Concomitant]
     Active Substance: FLUTICASONE PROPIONATE
     Indication: Sarcoidosis
     Dosage: 110 MICROGRAM
     Route: 045
     Dates: start: 20160726
  24. HYOSCYAMINE SULFATE [Concomitant]
     Active Substance: HYOSCYAMINE SULFATE
     Indication: Irritable bowel syndrome
     Dosage: 0.375 MILLIGRAM, BID
     Route: 048
     Dates: start: 20170430
  25. LANSOPRAZOLE [Concomitant]
     Active Substance: LANSOPRAZOLE
     Indication: Hypertensive heart disease
     Dosage: 20 MILLIGRAM, QD
     Route: 048
     Dates: start: 20121023
  26. ULORIC [Concomitant]
     Active Substance: FEBUXOSTAT
     Indication: Nephrolithiasis
     Dosage: 4 GRAM, QD
     Route: 048
     Dates: start: 20171018
  27. OXYBUTYNIN CHLORIDE [Concomitant]
     Active Substance: OXYBUTYNIN CHLORIDE
     Indication: Pollakiuria
     Dosage: 5 MILLIGRAM, QD
     Route: 048
     Dates: start: 20170920
  28. CHOLESTYRAMINE [Concomitant]
     Active Substance: CHOLESTYRAMINE
     Indication: Blood cholesterol increased
     Dosage: 4 GM, AS REQUIRED
     Route: 048
     Dates: start: 20181120
  29. CHOLESTYRAMINE [Concomitant]
     Active Substance: CHOLESTYRAMINE
     Indication: Diarrhoea
     Dosage: 4 GRAM, AS REQUIRED
     Route: 048
     Dates: start: 20180919
  30. ARANESP [Concomitant]
     Active Substance: DARBEPOETIN ALFA
     Indication: Anaemia
     Dosage: 300 MICROGRAM, AS REQUIRED
     Route: 058
     Dates: start: 20181219
  31. AMOXICILLIN [Concomitant]
     Active Substance: AMOXICILLIN
     Indication: Urinary tract infection
     Dosage: UNK
     Route: 065
     Dates: start: 20190313, end: 20190507
  32. FLOMAX [Concomitant]
     Active Substance: TAMSULOSIN HYDROCHLORIDE
     Indication: Urinary tract infection
     Dosage: 0.4 MILLIGRAM, QD
     Route: 048
     Dates: start: 20190313, end: 20190507
  33. TONIC [Concomitant]
     Indication: Muscle spasms
     Dosage: UNK
     Route: 065
     Dates: start: 20190313
  34. LOPERAMIDE [Concomitant]
     Active Substance: LOPERAMIDE
     Indication: Diarrhoea
     Dosage: 2 MILLIGRAM, BID AS NEEDED
     Route: 048
     Dates: start: 20181120

REACTIONS (12)
  - Cellulitis [Recovered/Resolved]
  - Syncope [Unknown]
  - Pyrexia [Unknown]
  - Asthenia [Unknown]
  - Haemoglobin decreased [Unknown]
  - Platelet count decreased [Not Recovered/Not Resolved]
  - White blood cell count decreased [Unknown]
  - Red blood cell count decreased [Not Recovered/Not Resolved]
  - Dizziness [Unknown]
  - Dyspnoea [Unknown]
  - Pneumonia [Recovered/Resolved]
  - Neutrophil count decreased [Unknown]

NARRATIVE: CASE EVENT DATE: 20190503
